FAERS Safety Report 5481473-2 (Version None)
Quarter: 2007Q4

REPORT INFORMATION
  Report Type: 
  Country: None (occurrence: None)
  Receive Date: 20071010
  Receipt Date: 20071001
  Transmission Date: 20080405
  Serious: Yes (Other)
  Sender: FDA-Public Use
  Company Number: DE-WYE-G00401507

PATIENT
  Age: 70 Year
  Sex: Female

DRUGS (1)
  1. CLIMOPAX MONO [Suspect]
     Dosage: UNKNOWN

REACTIONS (4)
  - CEREBRAL HAEMORRHAGE [None]
  - COUGH [None]
  - INCREASED BRONCHIAL SECRETION [None]
  - NASOPHARYNGITIS [None]
